FAERS Safety Report 12200748 (Version 2)
Quarter: 2016Q2

REPORT INFORMATION
  Report Type: Spontaneous
  Country: US (occurrence: US)
  Receive Date: 20160322
  Receipt Date: 20160405
  Transmission Date: 20160815
  Serious: Yes (Other)
  Sender: FDA-Public Use
  Company Number: US-GLAXOSMITHKLINE-US2016038984

PATIENT
  Age: 55 Year
  Sex: Female

DRUGS (2)
  1. LAMICTAL XR [Suspect]
     Active Substance: LAMOTRIGINE
     Indication: EPILEPSY
     Dosage: 300 MG, BID
     Route: 048
     Dates: start: 2006, end: 20160314
  2. LAMICTAL XR [Suspect]
     Active Substance: LAMOTRIGINE
     Dosage: 200 MG, BID
     Route: 048
     Dates: start: 20160314

REACTIONS (5)
  - Loss of consciousness [Recovered/Resolved]
  - Seizure [Unknown]
  - Intentional product use issue [Unknown]
  - Inability to afford medication [Unknown]
  - Unemployment [Unknown]

NARRATIVE: CASE EVENT DATE: 20160314
